FAERS Safety Report 6263431-3 (Version None)
Quarter: 2009Q3

REPORT INFORMATION
  Report Type: 
  Country: None (occurrence: None)
  Receive Date: 20090710
  Receipt Date: 20090420
  Transmission Date: 20100115
  Serious: No
  Sender: FDA-Public Use
  Company Number: A0766118A

PATIENT
  Age: 56 Year
  Sex: Female

DRUGS (26)
  1. FLOVENT [Suspect]
     Indication: ASTHMA
     Dosage: 2PUFF UNKNOWN
     Route: 055
     Dates: start: 20080901, end: 20081001
  2. SEREVENT [Suspect]
     Indication: ASTHMA
     Route: 055
     Dates: start: 20081001, end: 20081201
  3. ADVAIR HFA [Suspect]
     Indication: ASTHMA
     Dosage: 1PUFF TWICE PER DAY
     Route: 055
     Dates: start: 20081215
  4. ASPIRIN [Concomitant]
  5. BUSPAR [Concomitant]
  6. DOCUSATE [Concomitant]
  7. HYDROCHLOROTHIAZIDE [Concomitant]
  8. IBUPROFEN [Concomitant]
  9. LISINOPRIL [Concomitant]
  10. LOVASTATIN [Concomitant]
  11. MECLIZINE [Concomitant]
  12. METFORMIN HCL [Concomitant]
  13. VITAMIN WITH IRON [Concomitant]
  14. NEURITON [Concomitant]
  15. OMEPRAZOLE [Concomitant]
  16. RELPAX [Concomitant]
  17. PROVENTIL-HFA [Concomitant]
  18. SYNTHROID [Concomitant]
  19. WELLBUTRIN [Concomitant]
  20. XANAX [Concomitant]
  21. NAPROXIN [Concomitant]
  22. NASALIDE [Concomitant]
  23. VITAMIN B COMPLEX CAP [Concomitant]
  24. CALCIUM [Concomitant]
  25. VITAMIN D [Concomitant]
  26. TYLENOL (CAPLET) [Concomitant]

REACTIONS (2)
  - GLOSSODYNIA [None]
  - TONGUE ULCERATION [None]
